FAERS Safety Report 15440540 (Version 1)
Quarter: 2018Q3

REPORT INFORMATION
  Report Type: Spontaneous
  Country: US (occurrence: US)
  Receive Date: 20180928
  Receipt Date: 20180928
  Transmission Date: 20181010
  Serious: No
  Sender: FDA-Public Use
  Company Number: US-PFIZER INC-2016579809

PATIENT
  Age: 50 Year
  Sex: Female
  Weight: 120.2 kg

DRUGS (10)
  1. GENOTROPIN [Suspect]
     Active Substance: SOMATROPIN
     Dosage: UNK
  2. GENOTROPIN [Suspect]
     Active Substance: SOMATROPIN
     Dosage: 0.2 MG, DAILY
     Dates: start: 20170307
  3. GENOTROPIN [Suspect]
     Active Substance: SOMATROPIN
     Dosage: 0.3 MG, DAILY
     Dates: start: 20180308
  4. GENOTROPIN [Suspect]
     Active Substance: SOMATROPIN
     Indication: CUSHING^S SYNDROME
     Dosage: 0.3 MG, DAILY
     Route: 058
     Dates: start: 2008, end: 20100928
  5. GENOTROPIN [Suspect]
     Active Substance: SOMATROPIN
     Indication: HYPOTHALAMO-PITUITARY DISORDER
     Dosage: 0.2 MG, 1X/DAY (DAILY)
     Dates: start: 20161115, end: 201702
  6. GENOTROPIN [Suspect]
     Active Substance: SOMATROPIN
     Dosage: 0.3 MG, DAILY
  7. SYNTHROID [Concomitant]
     Active Substance: LEVOTHYROXINE SODIUM
     Indication: THYROID DISORDER
     Dosage: UNK
  8. GENOTROPIN [Suspect]
     Active Substance: SOMATROPIN
     Dosage: UNK
  9. GENOTROPIN [Suspect]
     Active Substance: SOMATROPIN
     Indication: BLOOD GROWTH HORMONE
     Dosage: UNK
  10. GENOTROPIN [Suspect]
     Active Substance: SOMATROPIN
     Dosage: UNK

REACTIONS (13)
  - Myalgia [Unknown]
  - Energy increased [Recovering/Resolving]
  - Drug dose omission [Unknown]
  - Accidental overdose [Unknown]
  - Fatigue [Recovered/Resolved]
  - Arthralgia [Unknown]
  - Condition aggravated [Not Recovered/Not Resolved]
  - Carpal tunnel syndrome [Unknown]
  - Lung disorder [Unknown]
  - Visual impairment [Recovering/Resolving]
  - Therapeutic response unexpected [Unknown]
  - Device issue [Unknown]
  - Neck pain [Not Recovered/Not Resolved]

NARRATIVE: CASE EVENT DATE: 2008
